FAERS Safety Report 12976363 (Version 1)
Quarter: 2016Q4

REPORT INFORMATION
  Report Type: Spontaneous
  Country: VN (occurrence: VN)
  Receive Date: 20161127
  Receipt Date: 20161127
  Transmission Date: 20170207
  Serious: Yes (Other)
  Sender: FDA-Public Use
  Company Number: VN-AMGEN-VNMSP2016165474

PATIENT
  Age: 66 Year
  Sex: Female

DRUGS (5)
  1. DOCETAXEL. [Suspect]
     Active Substance: DOCETAXEL
     Indication: BREAST CANCER
     Dosage: 75 MG/M2, 6 CYCLES
     Route: 065
  2. CARBOPLATIN. [Suspect]
     Active Substance: CARBOPLATIN
     Indication: BREAST CANCER
     Dosage: UNK, 6 CYCLES
     Route: 065
  3. LETROZOLE. [Suspect]
     Active Substance: LETROZOLE
     Indication: BREAST CANCER
     Dosage: QD
     Route: 065
     Dates: start: 201606, end: 201610
  4. PEGFILGRASTIM [Suspect]
     Active Substance: PEGFILGRASTIM
     Indication: PRODUCT USED FOR UNKNOWN INDICATION
     Dosage: UNK, 6 CYCLES
     Route: 065
  5. HERCEPTIN [Suspect]
     Active Substance: TRASTUZUMAB
     Indication: BREAST CANCER
     Dosage: Q3WK
     Route: 065
     Dates: start: 201606, end: 201610

REACTIONS (6)
  - Neutropenia [Unknown]
  - Drug effect incomplete [Unknown]
  - Hepatic lesion [Unknown]
  - Malignant neoplasm progression [Unknown]
  - Radiation pneumonitis [Unknown]
  - Radiotherapy to breast [Unknown]

NARRATIVE: CASE EVENT DATE: 2016
